FAERS Safety Report 4395440-3 (Version None)
Quarter: 2004Q3

REPORT INFORMATION
  Report Type: 
  Country: None (occurrence: None)
  Receive Date: 20040707
  Receipt Date: 20040624
  Transmission Date: 20050211
  Serious: Yes (Hospitalization)
  Sender: FDA-Public Use
  Company Number: 04P-087-0259796-00

PATIENT
  Age: 87 Year
  Sex: Female

DRUGS (6)
  1. BIAXIN [Suspect]
     Indication: BRONCHITIS ACUTE
     Dosage: 200 MG, 2 IN 1 D, PER ORAL
     Route: 048
     Dates: start: 20040406, end: 20040409
  2. GATIFLOXACIN [Suspect]
     Indication: BRONCHITIS ACUTE
     Dosage: 200 MG, 2 IN 1 D, PER ORAL
     Route: 048
     Dates: start: 20040408, end: 20040409
  3. BUDESONIDE [Concomitant]
  4. SALMETEROL XINAFOATE [Concomitant]
  5. PREDNISOLONE [Concomitant]
  6. LOSARTAN POTASSIUM [Concomitant]

REACTIONS (5)
  - ABASIA [None]
  - AMNESIA [None]
  - ASTHENIA [None]
  - C-REACTIVE PROTEIN INCREASED [None]
  - DISORIENTATION [None]
